FAERS Safety Report 6238495-3 (Version None)
Quarter: 2009Q2

REPORT INFORMATION
  Report Type: 
  Country: None (occurrence: None)
  Receive Date: 20090622
  Receipt Date: 20090617
  Transmission Date: 20091009
  Serious: Yes (Hospitalization)
  Sender: FDA-Public Use
  Company Number: CH-ROCHE-638832

PATIENT
  Age: 92 Year
  Sex: Female

DRUGS (9)
  1. ROCEPHIN [Suspect]
     Indication: DRUG USE FOR UNKNOWN INDICATION
     Route: 041
     Dates: start: 20090322, end: 20090327
  2. CEFUROXIME [Interacting]
     Indication: DRUG USE FOR UNKNOWN INDICATION
     Route: 048
     Dates: start: 20090424, end: 20090427
  3. SINTROM [Interacting]
     Indication: DRUG USE FOR UNKNOWN INDICATION
     Dosage: DRUG WITHDRAWN
     Route: 065
     Dates: end: 20090507
  4. AVELOX [Interacting]
     Indication: DRUG USE FOR UNKNOWN INDICATION
     Dosage: FORM: COATED TABLETS, FILM
     Route: 048
     Dates: start: 20090427, end: 20090506
  5. LISINOPRIL [Concomitant]
     Route: 048
     Dates: start: 20090406
  6. GABAPENTIN [Concomitant]
     Dosage: DRUG REPORTED AS GABANTIN
     Dates: start: 20090420
  7. TORSEMIDE [Concomitant]
     Route: 048
     Dates: start: 20090327, end: 20090427
  8. COLCHICINE [Concomitant]
     Route: 048
     Dates: start: 20090409
  9. DILTIAZEM [Concomitant]
     Dosage: FORM: COATED TABLETS, FILM
     Dates: start: 20090220

REACTIONS (2)
  - DRUG INTERACTION [None]
  - INTERNATIONAL NORMALISED RATIO INCREASED [None]
